FAERS Safety Report 6126228-0 (Version None)
Quarter: 2009Q1

REPORT INFORMATION
  Report Type: 
  Country: None (occurrence: None)
  Receive Date: 20090320
  Receipt Date: 20090309
  Transmission Date: 20090719
  Serious: No
  Sender: FDA-Public Use
  Company Number: JAFRA27134

PATIENT
  Sex: Female
  Weight: 58 kg

DRUGS (5)
  1. NIZORAL [Suspect]
     Indication: VULVOVAGINAL CANDIDIASIS
     Route: 048
     Dates: start: 19940110, end: 19940117
  2. ACTIFED [Concomitant]
     Indication: RHINITIS ALLERGIC
  3. ZYRTEC [Concomitant]
     Indication: URTICARIA
     Dates: start: 19931209, end: 19931216
  4. ATARAX [Concomitant]
     Indication: URTICARIA
     Dates: start: 19931211, end: 19931216
  5. ISOMERIDE [Concomitant]
     Dates: start: 19931226, end: 19931228

REACTIONS (1)
  - DRUG EXPOSURE DURING PREGNANCY [None]
